FAERS Safety Report 18641798 (Version 1)
Quarter: 2020Q4

REPORT INFORMATION
  Report Type: Spontaneous
  Country: US (occurrence: US)
  Receive Date: 20201221
  Receipt Date: 20201221
  Transmission Date: 20210114
  Serious: Yes (Life-Threatening, Other)
  Sender: FDA-Public Use
  Company Number: US-EMCURE PHARMACEUTICALS LTD-2020-EPL-002262

PATIENT
  Age: 14 Year
  Sex: Male
  Weight: 73 kg

DRUGS (1)
  1. BUPROPION HYDROCHLORIDE. [Suspect]
     Active Substance: BUPROPION HYDROCHLORIDE
     Indication: DEPRESSION
     Dosage: MAXIMUM DOSE 2.25 G

REACTIONS (3)
  - Intentional overdose [Unknown]
  - Serotonin syndrome [Recovered/Resolved]
  - Suicide attempt [Unknown]
